FAERS Safety Report 8533116-9 (Version None)
Quarter: 2012Q3

REPORT INFORMATION
  Report Type: 
  Country: None (occurrence: None)
  Receive Date: 20120724
  Receipt Date: 20120719
  Transmission Date: 20120928
  Serious: Yes (Life-Threatening)
  Sender: FDA-Public Use
  Company Number: BR-SHIRE-ALL1-2012-03494

PATIENT

DRUGS (1)
  1. MESALAMINE [Suspect]
     Indication: PROCTOCOLITIS
     Dosage: UNK, UNKNOWN
     Route: 048

REACTIONS (1)
  - LUNG NEOPLASM [None]
